FAERS Safety Report 14656007 (Version 1)
Quarter: 2018Q1

REPORT INFORMATION
  Report Type: Spontaneous
  Country: JP (occurrence: JP)
  Receive Date: 20180319
  Receipt Date: 20180319
  Transmission Date: 20180509
  Serious: Yes (Hospitalization, Other)
  Sender: FDA-Public Use
  Company Number: JP-MYLANLABS-2018M1016786

PATIENT
  Age: 32 Week
  Sex: Male

DRUGS (1)
  1. MAGNESIUM CHLORIDE. [Suspect]
     Active Substance: MAGNESIUM CHLORIDE
     Indication: PRE-ECLAMPSIA
     Dosage: THE MOTHER RECEIVED MAGNESIUM SULFATE 0.1 G/H (DAY 1), INCREASED TO 0.5 G/H (DAY2-5) ND 1.0 G/H (...
     Route: 064

REACTIONS (4)
  - Foetal exposure during pregnancy [Recovered/Resolved]
  - Hyperkalaemia [Recovered/Resolved]
  - Hypermagnesaemia [Recovered/Resolved]
  - Neonatal disorder [Recovered/Resolved]
